FAERS Safety Report 9396838 (Version 2)
Quarter: 2013Q3

REPORT INFORMATION
  Report Type: Spontaneous
  Country: US (occurrence: US)
  Receive Date: 20130712
  Receipt Date: 20130822
  Transmission Date: 20140515
  Serious: No
  Sender: FDA-Public Use
  Company Number: US-009507513-1307USA000813

PATIENT
  Age: 20 Year
  Sex: Female
  Weight: 63.39 kg

DRUGS (4)
  1. NEXPLANON [Suspect]
     Indication: CONTRACEPTION
     Dosage: UNK
     Route: 059
     Dates: start: 20130624, end: 20130624
  2. NEXPLANON [Suspect]
     Dosage: UNK
     Route: 059
     Dates: start: 20130624
  3. LEVORA [Concomitant]
     Dosage: 1 DF, QD
     Route: 048
     Dates: end: 20130721
  4. MICROGESTIN FE [Concomitant]
     Dosage: 1 DF, QD
     Route: 048
     Dates: start: 20101020, end: 20130721

REACTIONS (4)
  - Device difficult to use [Recovered/Resolved]
  - Product quality issue [Unknown]
  - Device expulsion [Recovered/Resolved]
  - No adverse event [Unknown]
